FAERS Safety Report 20195086 (Version 1)
Quarter: 2021Q4

REPORT INFORMATION
  Report Type: Spontaneous
  Country: CA (occurrence: CA)
  Receive Date: 20211216
  Receipt Date: 20211216
  Transmission Date: 20220303
  Serious: Yes (Other)
  Sender: FDA-Public Use
  Company Number: CA-SAMSUNG BIOEPIS-SB-2021-28865

PATIENT
  Age: 34 Year
  Sex: Male
  Weight: 84 kg

DRUGS (2)
  1. INFLIXIMAB [Suspect]
     Active Substance: INFLIXIMAB
     Indication: Crohn^s disease
     Route: 042
  2. MEZAVANT ALSO KNOWN AS MASALAMINE [Concomitant]
     Indication: Product used for unknown indication
     Dosage: DELAYED AND EXTENDED RELEASE
     Route: 048

REACTIONS (8)
  - Blood pressure increased [Unknown]
  - Bronchitis bacterial [Unknown]
  - Heart rate decreased [Unknown]
  - Pharyngitis bacterial [Unknown]
  - Weight decreased [Unknown]
  - Weight increased [Unknown]
  - Inappropriate schedule of product administration [Unknown]
  - Off label use [Unknown]
